FAERS Safety Report 5587207-5 (Version None)
Quarter: 2008Q1

REPORT INFORMATION
  Report Type: 
  Country: None (occurrence: None)
  Receive Date: 20080110
  Receipt Date: 20070412
  Transmission Date: 20080703
  Serious: No
  Sender: FDA-Public Use
  Company Number: US-BRISTOL-MYERS SQUIBB COMPANY-13745500

PATIENT
  Age: 46 Year
  Sex: Female
  Weight: 77 kg

DRUGS (5)
  1. CARDIOLITE INJ [Suspect]
     Indication: CARDIAC STRESS TEST
  2. CATAPRES [Concomitant]
  3. CELEBREX [Concomitant]
  4. ACCUPRIL [Concomitant]
  5. NORVASC [Concomitant]

REACTIONS (5)
  - BLISTER [None]
  - DERMATITIS [None]
  - NEURODERMATITIS [None]
  - PRURITUS [None]
  - RASH [None]
